FAERS Safety Report 19931254 (Version 1)
Quarter: 2021Q4

REPORT INFORMATION
  Report Type: Spontaneous
  Country: BR (occurrence: BR)
  Receive Date: 20211007
  Receipt Date: 20211007
  Transmission Date: 20220303
  Serious: Yes (Other)
  Sender: FDA-Public Use
  Company Number: BR-PFIZER INC-202101280344

PATIENT
  Age: 60 Year
  Sex: Female

DRUGS (1)
  1. PRISTIQ EXTENDED-RELEASE [Suspect]
     Active Substance: DESVENLAFAXINE SUCCINATE
     Dosage: 50 MG, 2X/DAY (50MG IN THE MORNING AND 50MG AT LUNCHTIME)

REACTIONS (4)
  - Dyspnoea [Unknown]
  - Anxiety [Unknown]
  - Wrong technique in product usage process [Unknown]
  - Tachycardia [Unknown]
